FAERS Safety Report 10353189 (Version 1)
Quarter: 2014Q3

REPORT INFORMATION
  Report Type: Report from Study
  Country: IT (occurrence: IT)
  Receive Date: 20140730
  Receipt Date: 20140730
  Transmission Date: 20150326
  Serious: Yes (Hospitalization)
  Sender: FDA-Public Use
  Company Number: IT-EXELIXIS-XL18414004547

PATIENT
  Age: 78 Year
  Sex: Male

DRUGS (8)
  1. DECAPEPTYL [Concomitant]
     Active Substance: TRIPTORELIN ACETATE
  2. EUTIROX [Concomitant]
     Active Substance: LEVOTHYROXINE SODIUM
  3. XL184 [Suspect]
     Active Substance: CABOZANTINIB
     Indication: PROSTATE CANCER
     Dosage: 60 MG, QD
     Route: 048
     Dates: start: 20130403
  4. XL184 [Suspect]
     Active Substance: CABOZANTINIB
     Indication: PROSTATE CANCER
     Dosage: 5 MG, BID
     Route: 048
     Dates: start: 20130403, end: 20140601
  5. TRIATEC [Concomitant]
     Active Substance: RAMIPRIL
  6. XL184 [Suspect]
     Active Substance: CABOZANTINIB
     Dosage: 40 MG, QD
     Dates: end: 20140601
  7. CODEX [Concomitant]
     Active Substance: ACETAMINOPHEN\CODEINE PHOSPHATE
  8. TACHIPIRINA [Concomitant]
     Active Substance: ACETAMINOPHEN

REACTIONS (1)
  - Anaemia [Recovered/Resolved]

NARRATIVE: CASE EVENT DATE: 20140625
